FAERS Safety Report 11602926 (Version 1)
Quarter: 2015Q4

REPORT INFORMATION
  Report Type: Spontaneous
  Country: US (occurrence: US)
  Receive Date: 20151006
  Receipt Date: 20151006
  Transmission Date: 20160304
  Serious: No
  Sender: FDA-Public Use
  Company Number: US-AMGEN-USASP2015085706

PATIENT
  Age: 61 Year
  Sex: Female
  Weight: 46.71 kg

DRUGS (7)
  1. PROLIA [Suspect]
     Active Substance: DENOSUMAB
     Indication: PRODUCT USED FOR UNKNOWN INDICATION
     Dosage: 1 MG/UNIT, Q6MO
     Route: 030
     Dates: start: 20150403
  2. VOLTAREN [Concomitant]
     Active Substance: DICLOFENAC SODIUM
     Dosage: UNK
     Route: 061
     Dates: start: 20131115
  3. OYST-CAL [Concomitant]
     Dosage: 500 MG, BID
     Route: 048
     Dates: start: 20081029
  4. FLORASTOR [Concomitant]
     Active Substance: SACCHAROMYCES CEREVISIAE
     Dosage: 250 MG, QD
     Route: 048
     Dates: start: 20150817
  5. VITAMIN C [Concomitant]
     Active Substance: ASCORBIC ACID
     Dosage: 500 UNK, QD
     Route: 048
     Dates: start: 20100721
  6. VITAMIN D3 [Concomitant]
     Active Substance: CHOLECALCIFEROL
     Dosage: 1000 MG, UNK
     Route: 048
     Dates: start: 20140217
  7. VALTREX [Concomitant]
     Active Substance: VALACYCLOVIR HYDROCHLORIDE
     Dosage: 500 MG, AS NECESSARY
     Route: 048
     Dates: start: 20100721

REACTIONS (3)
  - Pain in extremity [Unknown]
  - Arthralgia [Recovering/Resolving]
  - Incorrect route of drug administration [Unknown]

NARRATIVE: CASE EVENT DATE: 20150403
